FAERS Safety Report 6727184-4 (Version None)
Quarter: 2010Q2

REPORT INFORMATION
  Report Type: 
  Country: None (occurrence: None)
  Receive Date: 20100517
  Receipt Date: 20100504
  Transmission Date: 20101027
  Serious: Yes (Other)
  Sender: FDA-Public Use
  Company Number: US-JNJFOC-20100200888

PATIENT
  Sex: Male
  Weight: 67.59 kg

DRUGS (7)
  1. ST. JOSEPH ENTERIC COATED [Suspect]
     Indication: BLOOD CHOLESTEROL INCREASED
     Route: 048
  2. ST. JOSEPH ENTERIC COATED [Suspect]
     Indication: HYPERTENSION
     Route: 048
  3. COMBIVENT [Concomitant]
  4. CRESTOR [Concomitant]
     Indication: BLOOD CHOLESTEROL INCREASED
     Route: 048
  5. TOPROL-XL [Concomitant]
     Indication: HYPERTENSION
     Route: 048
  6. NORVASC [Concomitant]
     Indication: HYPERTENSION
  7. ADVAIR DISKUS 100/50 [Concomitant]
     Route: 055

REACTIONS (8)
  - ASTHMA [None]
  - CONFUSIONAL STATE [None]
  - DEPRESSION [None]
  - DIARRHOEA [None]
  - DIZZINESS [None]
  - HEADACHE [None]
  - PRODUCT QUALITY ISSUE [None]
  - VOMITING [None]
